FAERS Safety Report 4453282-4 (Version None)
Quarter: 2004Q3

REPORT INFORMATION
  Report Type: 
  Country: None (occurrence: None)
  Receive Date: 20040920
  Receipt Date: 20020319
  Transmission Date: 20050211
  Serious: Yes (Hospitalization, Disabling, Other)
  Sender: FDA-Public Use
  Company Number: US-MERCK-0203USA02026

PATIENT
  Age: 78 Year
  Sex: Male
  Weight: 84 kg

DRUGS (14)
  1. ASPIRIN [Concomitant]
     Route: 065
  2. ATENOLOL [Concomitant]
     Route: 065
  3. CYCLOBENZAPRINE HYDROCHLORIDE [Concomitant]
     Route: 048
  4. LASIX [Concomitant]
     Route: 065
  5. NOVOLIN [Concomitant]
     Indication: DIABETES MELLITUS
     Route: 058
     Dates: start: 19920101
  6. NOVOLIN [Concomitant]
     Route: 058
     Dates: start: 19920101
  7. ZESTRIL [Concomitant]
     Route: 065
  8. PROCARDIA [Concomitant]
     Route: 065
  9. TRENTAL [Concomitant]
     Route: 065
  10. POTASSIUM (UNSPECIFIED) [Concomitant]
     Route: 065
  11. RANITIDINE [Concomitant]
     Route: 065
  12. VIOXX [Suspect]
     Indication: BACK PAIN
     Route: 048
     Dates: start: 20000301, end: 20010101
  13. VIOXX [Suspect]
     Route: 048
     Dates: start: 20010101, end: 20010901
  14. ULTRAM [Concomitant]
     Route: 065
     Dates: start: 20000301

REACTIONS (53)
  - ABASIA [None]
  - ACTIVATED PARTIAL THROMBOPLASTIN TIME PROLONGED [None]
  - ANAEMIA [None]
  - ANXIETY [None]
  - AORTIC STENOSIS [None]
  - ARTERIAL STENOSIS [None]
  - BACK PAIN [None]
  - BLOOD CREATINE PHOSPHOKINASE MB INCREASED [None]
  - BLOOD CREATININE INCREASED [None]
  - BLOOD PRESSURE SYSTOLIC INCREASED [None]
  - BUTTOCK PAIN [None]
  - CARDIAC FAILURE CONGESTIVE [None]
  - CONDITION AGGRAVATED [None]
  - CONSTIPATION [None]
  - CORONARY ARTERY ATHEROSCLEROSIS [None]
  - CORONARY ARTERY OCCLUSION [None]
  - CORONARY ARTERY STENOSIS [None]
  - DIABETIC NEUROPATHY [None]
  - DRY SKIN [None]
  - EXOSTOSIS [None]
  - FEMORAL ARTERIAL STENOSIS [None]
  - GASTROOESOPHAGEAL REFLUX DISEASE [None]
  - HAEMATOCRIT DECREASED [None]
  - HAEMOGLOBIN INCREASED [None]
  - HERPES ZOSTER [None]
  - HYPERCHOLESTEROLAEMIA [None]
  - HYPERLIPIDAEMIA [None]
  - HYPOAESTHESIA [None]
  - INJURY [None]
  - INTERMITTENT CLAUDICATION [None]
  - LUMBAR RADICULOPATHY [None]
  - LUNG NEOPLASM [None]
  - MUSCLE CRAMP [None]
  - MUSCLE TIGHTNESS [None]
  - MUSCULOSKELETAL STIFFNESS [None]
  - MYOCARDIAL INFARCTION [None]
  - MYOCARDIAL ISCHAEMIA [None]
  - OEDEMA PERIPHERAL [None]
  - PAIN [None]
  - PAIN IN EXTREMITY [None]
  - PALLOR [None]
  - PERIPHERAL VASCULAR DISORDER [None]
  - PNEUMONIA [None]
  - PNEUMONITIS [None]
  - PULMONARY MASS [None]
  - RALES [None]
  - RENAL ARTERY STENOSIS [None]
  - RESPIRATORY RATE INCREASED [None]
  - RHONCHI [None]
  - SILENT MYOCARDIAL INFARCTION [None]
  - SPINAL COLUMN STENOSIS [None]
  - URINARY TRACT INFECTION [None]
  - VENTRICULAR HYPOKINESIA [None]
